FAERS Safety Report 8796075 (Version 1)
Quarter: 2012Q4

REPORT INFORMATION
  Report Type: 
  Country: US (occurrence: US)
  Receive Date: 20120920
  Receipt Date: 20120920
  Transmission Date: 20130627
  Serious: Yes (Other)
  Sender: FDA-Public Use
  Company Number: US-ROCHE-791214

PATIENT
  Age: 38 None
  Sex: Female
  Weight: 56.75 kg

DRUGS (2)
  1. ACCUTANE [Suspect]
     Indication: ACNE
     Route: 065
     Dates: start: 1986, end: 1987
  2. ACCUTANE [Suspect]
     Route: 065
     Dates: start: 198511, end: 19860311

REACTIONS (4)
  - Colitis ulcerative [Unknown]
  - Inflammatory bowel disease [Unknown]
  - Polyp [Unknown]
  - Emotional distress [Not Recovered/Not Resolved]
